FAERS Safety Report 6343907-0 (Version None)
Quarter: 2009Q3

REPORT INFORMATION
  Report Type: 
  Country: None (occurrence: None)
  Receive Date: 20090908
  Receipt Date: 20090828
  Transmission Date: 20100115
  Serious: Yes (Other)
  Sender: FDA-Public Use
  Company Number: US-PFIZER INC-2009255238

PATIENT
  Sex: Female

DRUGS (11)
  1. LYRICA [Suspect]
     Dosage: 100 MG, 3X/DAY
  2. ATENOLOL [Suspect]
     Dosage: 50 MG, 2X/DAY
  3. HYDROCHLOROTHIAZIDE [Suspect]
     Dosage: 50 MG, 1X/DAY
  4. AMRIX [Suspect]
     Dosage: 30 MG, 1X/DAY
     Dates: start: 20090429
  5. AMITRIPTYLINE [Suspect]
     Dosage: 50 MG, 1X/DAY
  6. SOMA [Suspect]
     Dosage: 350 MG 2 TO 3 PER DAY
  7. ALLEGRA [Suspect]
     Dosage: 180 MG, 1X/DAY
  8. FLUTICASONE PROPIONATE [Suspect]
     Dosage: UNK
     Route: 045
  9. LORCET-HD [Suspect]
     Dosage: 7.5 MG, 3X/DAY
  10. PROTONIX [Suspect]
     Dosage: 40 MG, 1X/DAY
  11. XANAX [Concomitant]
     Dosage: 0.5 MG, UNK

REACTIONS (3)
  - DEPRESSED LEVEL OF CONSCIOUSNESS [None]
  - DYSPNOEA [None]
  - SEDATION [None]
